FAERS Safety Report 8060764-5 (Version None)
Quarter: 2012Q1

REPORT INFORMATION
  Report Type: 
  Country: None (occurrence: None)
  Receive Date: 20120120
  Receipt Date: 20110112
  Transmission Date: 20120608
  Serious: No
  Sender: FDA-Public Use
  Company Number: US-ALLERGAN-1100397US

PATIENT
  Age: 77 Year
  Sex: Female

DRUGS (4)
  1. LUMIGAN [Concomitant]
  2. RESTASIS [Suspect]
     Indication: DRY EYE
     Dosage: 1 UNK, UNK
     Route: 047
     Dates: start: 20110107, end: 20110110
  3. COMBIGAN [Concomitant]
  4. DORZOLAMIDE [Concomitant]

REACTIONS (2)
  - EYELIDS PRURITUS [None]
  - BLEPHARITIS [None]
